FAERS Safety Report 22523178 (Version 1)
Quarter: 2023Q2

REPORT INFORMATION
  Report Type: Report from Study
  Country: US (occurrence: US)
  Receive Date: 20230606
  Receipt Date: 20230606
  Transmission Date: 20230721
  Serious: No
  Sender: FDA-Public Use
  Company Number: US-002147023-NVSC2023US127050

PATIENT
  Sex: Male

DRUGS (2)
  1. COSENTYX [Suspect]
     Active Substance: SECUKINUMAB
     Indication: Psoriasis
     Dosage: UNK
     Route: 065
  2. CEPHALEXIN [Suspect]
     Active Substance: CEPHALEXIN
     Indication: Psoriasis
     Dosage: UNK
     Route: 065

REACTIONS (8)
  - Pruritus [Unknown]
  - Dry skin [Unknown]
  - Erythema [Unknown]
  - Crepitations [Unknown]
  - Dermatitis psoriasiform [Unknown]
  - Skin plaque [Unknown]
  - Psoriasis [Unknown]
  - Drug ineffective [Unknown]
